FAERS Safety Report 24646357 (Version 1)
Quarter: 2024Q4

REPORT INFORMATION
  Report Type: Spontaneous
  Country: FR (occurrence: FR)
  Receive Date: 20241121
  Receipt Date: 20241121
  Transmission Date: 20250115
  Serious: Yes (Hospitalization)
  Sender: TAKEDA
  Company Number: None

PATIENT
  Age: 53 Year
  Sex: Female
  Weight: 95 kg

DRUGS (2)
  1. LANSOPRAZOLE [Suspect]
     Active Substance: LANSOPRAZOLE
     Indication: Chronic gastritis
     Dosage: 30 MILLIGRAM, QD
     Dates: start: 20231103, end: 20240106
  2. KETOPROFEN [Suspect]
     Active Substance: KETOPROFEN
     Indication: Ligament rupture
     Dosage: UNK
     Dates: start: 20231223, end: 20240106

REACTIONS (1)
  - Pancreatitis acute [Recovered/Resolved]

NARRATIVE: CASE EVENT DATE: 20240101
